FAERS Safety Report 6700577-7 (Version None)
Quarter: 2010Q2

REPORT INFORMATION
  Report Type: 
  Country: None (occurrence: None)
  Receive Date: 20100428
  Receipt Date: 20100425
  Transmission Date: 20101027
  Serious: Yes (Disabling)
  Sender: FDA-Public Use
  Company Number: Z0003929A

PATIENT
  Sex: Female
  Weight: 82.5 kg

DRUGS (5)
  1. CHLORAMBUCIL [Suspect]
     Route: 048
     Dates: start: 20090817
  2. CALPEROS [Concomitant]
     Indication: OSTEOPOROSIS PROPHYLAXIS
     Dosage: 500MG TWICE PER DAY
     Route: 048
     Dates: start: 20100415
  3. ALFADIOL [Concomitant]
     Indication: OSTEOPOROSIS PROPHYLAXIS
     Dosage: .25MCG PER DAY
     Route: 048
     Dates: start: 20100415
  4. ORTANOL [Concomitant]
     Indication: PROPHYLAXIS
     Dosage: 20MG PER DAY
     Route: 048
     Dates: start: 20100415
  5. OSTEOMAX (DIETARY SUPPLEMENT) [Concomitant]
     Indication: OSTEOPOROSIS PROPHYLAXIS
     Dosage: 70MG WEEKLY
     Route: 048
     Dates: start: 20100415

REACTIONS (1)
  - HAEMOLYTIC ANAEMIA [None]
